FAERS Safety Report 5508565-3 (Version None)
Quarter: 2007Q4

REPORT INFORMATION
  Report Type: 
  Country: None (occurrence: None)
  Receive Date: 20071031
  Receipt Date: 20070711
  Transmission Date: 20080405
  Serious: No
  Sender: FDA-Public Use
  Company Number: 2007PV033145

PATIENT
  Age: 50 Year
  Sex: Male

DRUGS (3)
  1. SYMLIN [Suspect]
     Indication: DRUG USE FOR UNKNOWN INDICATION
     Dosage: 120 MCG;TID;SC
     Route: 058
     Dates: start: 20070301
  2. NOVOLOG [Concomitant]
  3. GLUCOPHAGE [Concomitant]

REACTIONS (2)
  - NAUSEA [None]
  - WEIGHT DECREASED [None]
